FAERS Safety Report 6096974-6 (Version None)
Quarter: 2009Q1

REPORT INFORMATION
  Report Type: 
  Country: None (occurrence: None)
  Receive Date: 20090227
  Receipt Date: 20090218
  Transmission Date: 20090719
  Serious: Yes (Life-Threatening, Hospitalization, Other)
  Sender: FDA-Public Use
  Company Number: US-PFIZER INC-2008159091

PATIENT
  Sex: Female
  Weight: 83.9 kg

DRUGS (3)
  1. METRONIDAZOLE AND METRONIDAZOLE BENZOATE AND METRONIDAZOLE HYDROCHLORI [Suspect]
     Dosage: 750 MG, 3X/DAY
     Route: 048
     Dates: start: 20080828, end: 20081201
  2. PHENOBARBITAL [Concomitant]
  3. DIIODOHYDROXYQUINOLINE [Concomitant]

REACTIONS (6)
  - CARDIAC DISORDER [None]
  - CONVULSION [None]
  - DRUG INEFFECTIVE [None]
  - FEELING OF BODY TEMPERATURE CHANGE [None]
  - NERVOUS SYSTEM DISORDER [None]
  - PNEUMONIA KLEBSIELLA [None]
